FAERS Safety Report 13128138 (Version 1)
Quarter: 2017Q1

REPORT INFORMATION
  Report Type: Spontaneous
  Country: US (occurrence: US)
  Receive Date: 20170118
  Receipt Date: 20170118
  Transmission Date: 20170428
  Serious: No
  Sender: FDA-Public Use
  Company Number: US-NOVOPROD-517591

PATIENT
  Age: 73 Year
  Sex: Female

DRUGS (2)
  1. TRESIBA FLEXTOUCH U200 [Suspect]
     Active Substance: INSULIN DEGLUDEC
     Dosage: UNK
     Route: 058
  2. TRESIBA FLEXTOUCH U200 [Suspect]
     Active Substance: INSULIN DEGLUDEC
     Indication: TYPE 2 DIABETES MELLITUS
     Dosage: 86 IU, QD
     Route: 058
     Dates: start: 20161019

REACTIONS (3)
  - Blood glucose increased [Recovered/Resolved]
  - Device failure [Recovered/Resolved]
  - Blood glucose decreased [Not Recovered/Not Resolved]
